FAERS Safety Report 18260443 (Version 1)
Quarter: 2020Q3

REPORT INFORMATION
  Report Type: Spontaneous
  Country: FR (occurrence: FR)
  Receive Date: 20200914
  Receipt Date: 20200914
  Transmission Date: 20201103
  Serious: Yes (Other)
  Sender: FDA-Public Use
  Company Number: FR-TEVA-2020-FR-1825725

PATIENT
  Age: 78 Year
  Sex: Male
  Weight: 64.5 kg

DRUGS (2)
  1. SERESTA 10 MG, COMPRIME [Suspect]
     Active Substance: OXAZEPAM
     Indication: ANXIETY
     Dosage: UNIT DOSE : 2 DOSAGE FORMS
     Route: 048
     Dates: start: 20191128, end: 20200415
  2. DIAZEPAM. [Suspect]
     Active Substance: DIAZEPAM
     Indication: PRODUCT USED FOR UNKNOWN INDICATION
     Dosage: UNIT DOSE : 5 MILLIGRAM
     Route: 048
     Dates: start: 20191128, end: 20200415

REACTIONS (2)
  - Condition aggravated [Recovered/Resolved]
  - Confusional state [Recovered/Resolved]

NARRATIVE: CASE EVENT DATE: 20200411
